FAERS Safety Report 7747439-4 (Version None)
Quarter: 2011Q3

REPORT INFORMATION
  Report Type: 
  Country: None (occurrence: None)
  Receive Date: 20110909
  Receipt Date: 20110831
  Transmission Date: 20111222
  Serious: Yes (Death)
  Sender: FDA-Public Use
  Company Number: 1032145

PATIENT
  Age: 69 Year
  Sex: Female

DRUGS (5)
  1. RANITIDINE [Concomitant]
  2. ZOFRAN [Concomitant]
  3. CYCLOPHOSPHAMIDE [Concomitant]
  4. SOLU-MEDROL [Concomitant]
  5. DOCETAXEL [Suspect]
     Indication: BREAST CANCER
     Dosage: 120 MG MILLIGRAM(S), INTRAVENOUS (NO OTHERWISE SPECIFIED)
     Route: 042
     Dates: start: 20110713, end: 20110713

REACTIONS (7)
  - INTESTINAL INFARCTION [None]
  - MALAISE [None]
  - ABDOMINAL PAIN [None]
  - ACUTE ABDOMEN [None]
  - VOMITING [None]
  - PYREXIA [None]
  - NEUTROPENIA [None]
